FAERS Safety Report 10374742 (Version 1)
Quarter: 2014Q3

REPORT INFORMATION
  Report Type: Report from Study
  Country: US (occurrence: US)
  Receive Date: 20140811
  Receipt Date: 20140811
  Transmission Date: 20150326
  Serious: Yes (Other)
  Sender: FDA-Public Use
  Company Number: US-SA-2014SA105186

PATIENT

DRUGS (1)
  1. LANTUS [Suspect]
     Active Substance: INSULIN GLARGINE
     Indication: PRODUCT USED FOR UNKNOWN INDICATION
     Route: 065

REACTIONS (8)
  - Back pain [Unknown]
  - Obesity [Unknown]
  - Hyperproteinaemia [Unknown]
  - Arthritis [Unknown]
  - Hyperlipidaemia [Unknown]
  - Left ventricular hypertrophy [Unknown]
  - Type 2 diabetes mellitus [Unknown]
  - Atrophy [Unknown]
